FAERS Safety Report 8375525-7 (Version None)
Quarter: 2012Q1

REPORT INFORMATION
  Report Type: 
  Country: None (occurrence: None)
  Receive Date: 20120323
  Receipt Date: 20111206
  Transmission Date: 20120608
  Serious: Yes (Other)
  Sender: FDA-Public Use
  Company Number: 163-21880-11113611

PATIENT
  Age: 76 Year
  Sex: Male
  Weight: 97.5234 kg

DRUGS (21)
  1. AMLODIPINE [Concomitant]
  2. FISH OIL (FISH OIL) [Concomitant]
  3. PRADAXA (DABIGATRAN ETEXILATE MESILATE) [Concomitant]
  4. PROBECID (PROBENECID) [Concomitant]
  5. CRESTOR (ROSVUASTATIN) [Concomitant]
  6. VITAMIN D [Concomitant]
  7. LYCOPENE (LYCOPENE) [Concomitant]
  8. PROCRIT [Concomitant]
  9. CALCIUM PLUS VITAMIN D (CALCIUM D3 ^STADA^) [Concomitant]
  10. GLIPIZIDE [Concomitant]
  11. MUSCLE RELAXER (MUSCLER RELAXANTS) [Concomitant]
  12. CONAZEPAM (CLONAZEPAM) [Concomitant]
  13. ENABLEX [Concomitant]
  14. LUTEIN (XANTOFYL) [Concomitant]
  15. OMEPRAZOLE [Concomitant]
  16. BISOPROLOL FUMARATE [Concomitant]
  17. JANUVIA [Concomitant]
  18. REVLIMID [Suspect]
     Indication: LYMPHOMA
     Dosage: 10 MG, 21/7, PO
     Route: 048
     Dates: start: 20111102
  19. LORATADINE [Concomitant]
  20. BENAZEPRIL HYDROCHLORIDE [Concomitant]
  21. PAROXETINE HCL [Concomitant]

REACTIONS (8)
  - RASH [None]
  - MUSCULAR WEAKNESS [None]
  - ANAEMIA [None]
  - THROMBOCYTOPENIA [None]
  - VOMITING [None]
  - PAIN IN EXTREMITY [None]
  - NEUTROPENIA [None]
  - NAUSEA [None]
